FAERS Safety Report 7426767-6 (Version None)
Quarter: 2011Q2

REPORT INFORMATION
  Report Type: 
  Country: None (occurrence: None)
  Receive Date: 20110420
  Receipt Date: 20110412
  Transmission Date: 20111010
  Serious: Yes (Hospitalization, Other)
  Sender: FDA-Public Use
  Company Number: US-GENENTECH-314964

PATIENT
  Sex: Female
  Weight: 72.109 kg

DRUGS (1)
  1. XOLAIR [Suspect]
     Indication: PRODUCT USED FOR UNKNOWN INDICATION
     Dosage: 375 MG, Q2W
     Route: 030

REACTIONS (6)
  - MIGRAINE [None]
  - HYPERTENSION [None]
  - HYPERTENSIVE ENCEPHALOPATHY [None]
  - DYSARTHRIA [None]
  - MENTAL IMPAIRMENT [None]
  - VIITH NERVE PARALYSIS [None]
